FAERS Safety Report 5194804-8 (Version None)
Quarter: 2006Q4

REPORT INFORMATION
  Report Type: 
  Country: None (occurrence: None)
  Receive Date: 20061229
  Receipt Date: 20061106
  Transmission Date: 20070319
  Serious: Yes (Death, Life-Threatening, Hospitalization)
  Sender: FDA-Public Use
  Company Number: NL-BRISTOL-MYERS SQUIBB COMPANY-13567623

PATIENT
  Age: 72 Year
  Sex: Male

DRUGS (13)
  1. CISPLATIN [Suspect]
     Indication: NON-SMALL CELL LUNG CANCER
     Route: 042
     Dates: start: 20061010
  2. GEMCITABINE [Suspect]
     Indication: NON-SMALL CELL LUNG CANCER
     Route: 042
     Dates: start: 20061010, end: 20061017
  3. SINTROM MITIS [Concomitant]
     Indication: ATRIAL FIBRILLATION
     Route: 048
     Dates: start: 19990101
  4. FUROSEMIDE [Concomitant]
     Indication: ATRIAL FIBRILLATION
     Route: 048
     Dates: start: 19990101
  5. SELOKEEN [Concomitant]
     Indication: ATRIAL FIBRILLATION
     Route: 048
     Dates: start: 19990101
  6. ENALAPRIL MALEATE [Concomitant]
     Indication: ATRIAL FIBRILLATION
     Route: 048
     Dates: start: 19990101
  7. VITAMIN B-12 [Concomitant]
     Route: 030
  8. LANOXIN [Concomitant]
     Indication: ATRIAL FIBRILLATION
     Route: 048
     Dates: start: 19990101
  9. DEXAMETHASONE [Concomitant]
     Dates: start: 20061010, end: 20061014
  10. METOCLOPRAMIDE [Concomitant]
     Dates: start: 20061011
  11. POTASSIUM CHLORIDE [Concomitant]
     Dates: start: 20061010, end: 20061011
  12. MAGNESIUM CHLORIDE [Concomitant]
     Dates: start: 20061010, end: 20061011
  13. APREPITANT [Concomitant]
     Dates: start: 20061010, end: 20061012

REACTIONS (3)
  - ANAEMIA [None]
  - CIRCULATORY COLLAPSE [None]
  - THROMBOCYTOPENIA [None]
